FAERS Safety Report 11827246 (Version 3)
Quarter: 2016Q1

REPORT INFORMATION
  Report Type: Spontaneous
  Country: DE (occurrence: DE)
  Receive Date: 20151211
  Receipt Date: 20160119
  Transmission Date: 20160525
  Serious: Yes (Life-Threatening, Hospitalization)
  Sender: FDA-Public Use
  Company Number: DE-ROCHE-1675636

PATIENT
  Age: 59 Year
  Sex: Female
  Weight: 89.9 kg

DRUGS (14)
  1. SALBUTAMOL [Concomitant]
     Active Substance: ALBUTEROL
     Indication: PREMEDICATION
     Dosage: AS REQUIRED
     Route: 065
  2. ZOFRAN [Concomitant]
     Active Substance: ONDANSETRON HYDROCHLORIDE
     Dosage: AS REQUIRED
     Route: 065
  3. HERCEPTIN [Concomitant]
     Active Substance: TRASTUZUMAB
     Indication: BREAST CANCER
     Route: 042
     Dates: start: 20151104
  4. EPIRUBICIN [Concomitant]
     Active Substance: EPIRUBICIN
     Indication: BREAST CANCER
     Route: 042
     Dates: start: 20151104, end: 20151125
  5. HERCEPTIN [Concomitant]
     Active Substance: TRASTUZUMAB
     Route: 042
     Dates: end: 20151125
  6. PERJETA [Suspect]
     Active Substance: PERTUZUMAB
     Route: 042
     Dates: end: 20151125
  7. RELVAR [Concomitant]
     Active Substance: FLUTICASONE FUROATE\VILANTEROL TRIFENATATE
     Indication: PREMEDICATION
     Dosage: 92/22 2X/DAY AS REQUIRED
     Route: 065
  8. DEXAMETHASON [Concomitant]
     Active Substance: DEXAMETHASONE
     Dosage: AFTER CHEMOTHERAPY
     Route: 065
  9. UROMITEXAN [Concomitant]
     Active Substance: MESNA
     Dosage: 2H AND 6H AFTER CHEMOTHERAPY
     Route: 065
  10. PERJETA [Suspect]
     Active Substance: PERTUZUMAB
     Indication: BREAST CANCER
     Route: 042
     Dates: start: 20151104
  11. BISOPROLOL [Concomitant]
     Active Substance: BISOPROLOL
     Indication: PREMEDICATION
     Route: 065
  12. CYCLOPHOSPHAMID [Concomitant]
     Active Substance: CYCLOPHOSPHAMIDE
     Indication: BREAST CANCER
     Route: 065
  13. PANTOZOL (BELGIUM) [Concomitant]
     Indication: PREMEDICATION
     Route: 065
  14. EMEND [Concomitant]
     Active Substance: APREPITANT
     Dosage: 125 1H BEFORE CHEMOTHERPY / 80 AFTER CHEMOTHERAPY
     Route: 065

REACTIONS (15)
  - Sepsis [Unknown]
  - Lymphadenopathy mediastinal [Unknown]
  - Transaminases increased [Unknown]
  - Dyspnoea [Recovering/Resolving]
  - Sinus tachycardia [Unknown]
  - Cholelithiasis [Unknown]
  - Neutropenia [Unknown]
  - Diarrhoea [Recovering/Resolving]
  - Gastritis [Unknown]
  - Pneumocystis jirovecii pneumonia [Recovering/Resolving]
  - Respiratory depression [Recovering/Resolving]
  - General physical health deterioration [Unknown]
  - Gastric haemorrhage [Unknown]
  - Cyanosis [Unknown]
  - Oxygen saturation decreased [Recovering/Resolving]

NARRATIVE: CASE EVENT DATE: 20151125
